FAERS Safety Report 12971070 (Version 2)
Quarter: 2016Q4

REPORT INFORMATION
  Report Type: Spontaneous
  Country: US (occurrence: US)
  Receive Date: 20161123
  Receipt Date: 20161128
  Transmission Date: 20170207
  Serious: No
  Sender: FDA-Public Use
  Company Number: US-JAZZ-2016-US-018939

PATIENT
  Sex: Female

DRUGS (18)
  1. XYREM [Suspect]
     Active Substance: SODIUM OXYBATE
     Indication: NARCOLEPSY
     Dosage: 2.25 G, BID
     Route: 048
     Dates: start: 201503, end: 201503
  2. NEXIUM [Concomitant]
     Active Substance: ESOMEPRAZOLE MAGNESIUM
  3. XANAX [Concomitant]
     Active Substance: ALPRAZOLAM
  4. SUDAFED PE CONGESTION [Concomitant]
     Active Substance: PHENYLEPHRINE HYDROCHLORIDE
  5. IBUPROFEN. [Concomitant]
     Active Substance: IBUPROFEN
  6. NYQUIL COLD AND FLU [Concomitant]
     Active Substance: ACETAMINOPHEN\DEXTROMETHORPHAN HYDROBROMIDE\DOXYLAMINE SUCCINATE
  7. MULTIVITAMIN                       /00097801/ [Concomitant]
     Active Substance: VITAMINS
  8. NAPROXEN SOD [Concomitant]
  9. SCOPOLAMINE                        /00008701/ [Concomitant]
     Active Substance: SCOPOLAMINE
  10. ALEVE [Concomitant]
     Active Substance: NAPROXEN SODIUM
  11. XYREM [Suspect]
     Active Substance: SODIUM OXYBATE
     Dosage: 2.5 G, SECOND DOSE
     Route: 048
     Dates: start: 201512
  12. FEXOFENADINE HCL [Concomitant]
     Active Substance: FEXOFENADINE HYDROCHLORIDE
  13. PROVIGIL [Concomitant]
     Active Substance: MODAFINIL
  14. XYREM [Suspect]
     Active Substance: SODIUM OXYBATE
     Dosage: UNKNOWN DOSE
     Route: 048
     Dates: start: 201503, end: 201512
  15. XYREM [Suspect]
     Active Substance: SODIUM OXYBATE
     Dosage: 3 G, FIRST DOSE
     Route: 048
     Dates: start: 201512
  16. ISOPTO HYOSCINE [Concomitant]
     Active Substance: SCOPOLAMINE HYDROBROMIDE
  17. LO LOESTRIN FE [Concomitant]
     Active Substance: ETHINYL ESTRADIOL\NORETHINDRONE ACETATE
  18. ADDERALL [Concomitant]
     Active Substance: AMPHETAMINE ASPARTATE\AMPHETAMINE SULFATE\DEXTROAMPHETAMINE SACCHARATE\DEXTROAMPHETAMINE SULFATE

REACTIONS (3)
  - Eructation [Not Recovered/Not Resolved]
  - Vomiting [Not Recovered/Not Resolved]
  - Aerophagia [Not Recovered/Not Resolved]
